FAERS Safety Report 21946823 (Version 2)
Quarter: 2023Q1

REPORT INFORMATION
  Report Type: Spontaneous
  Country: ES (occurrence: ES)
  Receive Date: 20230202
  Receipt Date: 20230207
  Transmission Date: 20230418
  Serious: Yes (Hospitalization, Other)
  Sender: FDA-Public Use
  Company Number: ES-MLMSERVICE-20230125-4061018-1

PATIENT
  Age: 55 Year
  Sex: Male

DRUGS (7)
  1. DOXORUBICIN HYDROCHLORIDE [Suspect]
     Active Substance: DOXORUBICIN HYDROCHLORIDE
     Indication: Osteosarcoma
     Dosage: UNK (CHEMOTHERAPY WAS STARTED WITH 50% DOSE REDUCTION)
  2. DOXORUBICIN HYDROCHLORIDE [Suspect]
     Active Substance: DOXORUBICIN HYDROCHLORIDE
     Dosage: 75 MG/M2, CYCLIC (D1-3 (THIRD CYCLE))
  3. DOXORUBICIN HYDROCHLORIDE [Suspect]
     Active Substance: DOXORUBICIN HYDROCHLORIDE
     Dosage: 150 MG/M2, CYCLIC
  4. CISPLATIN [Suspect]
     Active Substance: CISPLATIN
     Indication: Osteosarcoma
     Dosage: UNK (CHEMOTHERAPY WAS STARTED WITH 50% DOSE REDUCTION)
  5. CISPLATIN [Suspect]
     Active Substance: CISPLATIN
     Dosage: 75 MG/M2, CYCLIC (DAY 1-3 (THIRD CYCLE))
  6. CISPLATIN [Suspect]
     Active Substance: CISPLATIN
     Dosage: 175 MG/M2, CYCLIC
  7. GRANULOCYTE COLONY-STIMULATING FACTOR NOS [Concomitant]
     Active Substance: GRANULOCYTE COLONY-STIMULATING FACTOR NOS
     Dosage: UNK

REACTIONS (6)
  - Febrile neutropenia [Unknown]
  - Thrombocytopenia [Unknown]
  - Diarrhoea [Unknown]
  - Asthenia [Unknown]
  - Anaemia [Unknown]
  - Mucosal inflammation [Unknown]
